FAERS Safety Report 21126203 (Version 1)
Quarter: 2022Q3

REPORT INFORMATION
  Report Type: Spontaneous
  Country: JP (occurrence: JP)
  Receive Date: 20220725
  Receipt Date: 20220725
  Transmission Date: 20221027
  Serious: Yes (Other)
  Sender: FDA-Public Use
  Company Number: PHHY2015JP132341

PATIENT

DRUGS (1)
  1. VOTRIENT [Suspect]
     Active Substance: PAZOPANIB HYDROCHLORIDE
     Indication: Angiosarcoma
     Dosage: UNK
     Route: 048

REACTIONS (3)
  - Angiosarcoma [Unknown]
  - Malignant neoplasm progression [Unknown]
  - Toxicity to various agents [Unknown]
